FAERS Safety Report 18508312 (Version 1)
Quarter: 2020Q4

REPORT INFORMATION
  Report Type: Spontaneous
  Country: JP (occurrence: JP)
  Receive Date: 20201116
  Receipt Date: 20201116
  Transmission Date: 20210114
  Serious: Yes (Hospitalization, Other)
  Sender: FDA-Public Use
  Company Number: JP-NEUROCRINE BIOSCIENCES INC.-2020NBI04181

PATIENT
  Age: 88 Year
  Sex: Male

DRUGS (2)
  1. DOPACOL [Concomitant]
     Active Substance: CARBIDOPA\LEVODOPA
     Indication: PARKINSON^S DISEASE
     Route: 048
  2. ONGENTYS [Suspect]
     Active Substance: OPICAPONE
     Indication: PARKINSON^S DISEASE
     Dosage: AT BEDTIME
     Route: 048
     Dates: start: 20200916

REACTIONS (2)
  - Cerebral artery embolism [Unknown]
  - Back pain [Unknown]

NARRATIVE: CASE EVENT DATE: 20201019
